FAERS Safety Report 8971190 (Version 1)
Quarter: 2012Q4

REPORT INFORMATION
  Report Type: Report from Study
  Country: GB (occurrence: GB)
  Receive Date: 20121218
  Receipt Date: 20121218
  Transmission Date: 20130627
  Serious: Yes (Hospitalization)
  Sender: FDA-Public Use
  Company Number: GB-PFIZER INC-2012315045

PATIENT
  Age: 65 Year
  Sex: Female
  Weight: 66.9 kg

DRUGS (10)
  1. CYCLOPHOSPHAMIDE [Suspect]
     Indication: BREAST CANCER
     Dosage: 850 mg, cyclic
     Route: 065
     Dates: start: 20110120
  2. EPIRUBICIN HCL [Suspect]
     Indication: BREAST CANCER
     Dosage: 170 mg, cyclic
     Route: 065
     Dates: start: 20110120
  3. DOCETAXEL [Suspect]
     Indication: BREAST CANCER
     Dosage: 170 mg, cyclic
     Dates: start: 20101209
  4. FLUOROURACIL [Suspect]
     Indication: BREAST CANCER
     Dosage: 850 mg, cyclic
     Route: 065
     Dates: start: 20110120
  5. BEVACIZUMAB [Suspect]
     Indication: BREAST CANCER
     Dosage: 1000 mg, cycle 2
     Route: 065
     Dates: start: 20101209
  6. BEVACIZUMAB [Suspect]
     Dosage: 1000 mg, cycle 4
     Route: 065
     Dates: start: 20110120
  7. ATENOLOL [Concomitant]
     Indication: HYPERTENSION
     Dosage: 50 mg, 1x/day
     Route: 048
  8. BENDROFLUMETHIAZIDE [Concomitant]
     Indication: HYPERTENSION
     Dosage: 2.5 mg, 1x/day
     Route: 048
  9. LISINOPRIL [Concomitant]
     Indication: HYPERTENSION
     Dosage: 2.5 mg, 1x/day
     Route: 048
  10. SIMVASTATIN [Concomitant]
     Indication: HYPERTENSION
     Dosage: 40 mg, 1x/day
     Route: 048

REACTIONS (5)
  - Neutropenia [Recovered/Resolved]
  - Oesophagitis [Recovered/Resolved]
  - Cough [Recovered/Resolved]
  - Pyrexia [Recovered/Resolved]
  - Neutropenic sepsis [Recovered/Resolved]
